FAERS Safety Report 6813809-1 (Version None)
Quarter: 2010Q3

REPORT INFORMATION
  Report Type: 
  Country: None (occurrence: None)
  Receive Date: 20100702
  Receipt Date: 20100623
  Transmission Date: 20110219
  Serious: Yes (Hospitalization)
  Sender: FDA-Public Use
  Company Number: US-BIOGENIDEC-2009BI018547

PATIENT
  Age: 45 Year
  Sex: Female
  Weight: 65 kg

DRUGS (9)
  1. TYSABRI [Suspect]
     Indication: MULTIPLE SCLEROSIS
     Route: 042
     Dates: start: 20061120
  2. WELLBRUTIN [Concomitant]
     Indication: DEPRESSION
     Dates: start: 19970101
  3. CYMBALTA [Concomitant]
     Indication: DEPRESSION
     Dates: start: 19970101
  4. PREVACID [Concomitant]
     Indication: GASTROOESOPHAGEAL REFLUX DISEASE
     Dates: start: 19980101
  5. NORVASC [Concomitant]
     Indication: OESOPHAGEAL SPASM
     Dates: start: 19990101
  6. SYNTHROID [Concomitant]
     Indication: HYPOTHYROIDISM
     Dates: start: 20010101
  7. BACLOFEN [Concomitant]
     Indication: MUSCLE SPASTICITY
     Dates: start: 20010901
  8. SANCTURA [Concomitant]
     Indication: BLADDER SPASM
  9. XANAX [Concomitant]
     Indication: ANXIETY

REACTIONS (13)
  - CELLULITIS [None]
  - DIZZINESS [None]
  - FALL [None]
  - INSOMNIA [None]
  - INTERVERTEBRAL DISC PROTRUSION [None]
  - LETHARGY [None]
  - NARCOLEPSY [None]
  - NEUROPATHY PERIPHERAL [None]
  - OSTEOPOROSIS [None]
  - RADIUS FRACTURE [None]
  - STRESS [None]
  - SUPRAVENTRICULAR TACHYCARDIA [None]
  - WRIST FRACTURE [None]
